FAERS Safety Report 7433795-3 (Version None)
Quarter: 2011Q2

REPORT INFORMATION
  Report Type: 
  Country: None (occurrence: None)
  Receive Date: 20110425
  Receipt Date: 20110414
  Transmission Date: 20111010
  Serious: No
  Sender: FDA-Public Use
  Company Number: US-BIOGENIDEC-2011BI000496

PATIENT
  Age: 46 Year
  Sex: Female

DRUGS (1)
  1. TYSABRI [Suspect]
     Indication: MULTIPLE SCLEROSIS
     Route: 042
     Dates: start: 20080703

REACTIONS (8)
  - TREMOR [None]
  - HEADACHE [None]
  - SINUSITIS [None]
  - BRONCHITIS [None]
  - HEMIPARESIS [None]
  - FATIGUE [None]
  - NASOPHARYNGITIS [None]
  - INFLUENZA [None]
